FAERS Safety Report 7470870-1 (Version None)
Quarter: 2011Q2

REPORT INFORMATION
  Report Type: 
  Country: None (occurrence: None)
  Receive Date: 20110510
  Receipt Date: 20110505
  Transmission Date: 20111010
  Serious: Yes (Hospitalization, Other)
  Sender: FDA-Public Use
  Company Number: FR-PFIZER INC-2011096437

PATIENT
  Age: 71 Year
  Sex: Female

DRUGS (10)
  1. STABLON [Concomitant]
     Indication: DEPRESSION
     Dosage: 12.5 MG, 3X/DAY
     Route: 048
     Dates: start: 20100101, end: 20110125
  2. LEVOTHYROXINE SODIUM [Concomitant]
     Indication: HYPOTHYROIDISM
     Dosage: 75 UG, 1X/DAY
     Route: 048
  3. LEXOMIL [Concomitant]
     Indication: ANXIETY
     Dosage: 0.25 DF, 1X/DAY
     Route: 048
  4. FLECAINE [Concomitant]
     Indication: ATRIAL FIBRILLATION
     Dosage: 150 MG, 1X/DAY
     Route: 048
  5. VALSARTAN [Concomitant]
     Indication: HYPERTENSION
     Dosage: 40 MG, 1X/DAY
     Route: 048
     Dates: end: 20110125
  6. ALDACTONE [Suspect]
     Indication: HYPERTENSION
     Dosage: 25 MG, 1X/DAY
     Route: 048
     Dates: start: 20080101, end: 20110125
  7. ASPIRIN [Suspect]
     Indication: CARDIAC VALVE DISEASE
     Dosage: 75 MG, 1X/DAY
     Route: 048
     Dates: start: 20080101, end: 20110125
  8. COUMADIN [Suspect]
     Indication: CARDIAC VALVE DISEASE
     Dosage: 5 MG, 1X/DAY
     Route: 048
     Dates: start: 20080101, end: 20110125
  9. LASIX [Concomitant]
     Indication: HYPERTENSION
     Dosage: 20 MG, 2X/DAY
     Route: 048
     Dates: start: 20080101, end: 20110125
  10. TEMERIT [Concomitant]
     Indication: HYPERTENSION
     Dosage: 5 MG, 1X/DAY
     Route: 048
     Dates: start: 20080101, end: 20110125

REACTIONS (2)
  - GASTROINTESTINAL HAEMORRHAGE [None]
  - MELAENA [None]
